FAERS Safety Report 6748147-9 (Version None)
Quarter: 2010Q2

REPORT INFORMATION
  Report Type: 
  Country: None (occurrence: None)
  Receive Date: 20100531
  Receipt Date: 20100521
  Transmission Date: 20101027
  Serious: Yes (Other)
  Sender: FDA-Public Use
  Company Number: NL-JNJFOC-20090501868

PATIENT
  Age: 17 Year
  Sex: Male

DRUGS (1)
  1. RISPERDAL [Suspect]
     Indication: ASPERGER'S DISORDER
     Dosage: 1 MG A DAY AND NEXT DAY 0.5 MG
     Route: 065

REACTIONS (5)
  - DYSPHAGIA [None]
  - FINGER DEFORMITY [None]
  - MUSCLE CONTRACTURE [None]
  - TOURETTE'S DISORDER [None]
  - TREMOR [None]
